FAERS Safety Report 10612538 (Version 1)
Quarter: 2014Q4

REPORT INFORMATION
  Report Type: Spontaneous
  Country: US (occurrence: US)
  Receive Date: 20141127
  Receipt Date: 20141127
  Transmission Date: 20150529
  Serious: No
  Sender: FDA-Public Use
  Company Number: US-BIOGENIDEC-2014BI123014

PATIENT
  Sex: Female

DRUGS (1)
  1. TECFIDERA [Suspect]
     Active Substance: DIMETHYL FUMARATE
     Indication: MULTIPLE SCLEROSIS

REACTIONS (7)
  - Bipolar disorder [Unknown]
  - Feeling hot [Unknown]
  - Vomiting [Unknown]
  - Drug dose omission [Unknown]
  - Pain [Unknown]
  - Decreased immune responsiveness [Unknown]
  - Influenza like illness [Unknown]
